FAERS Safety Report 6318458-X (Version None)
Quarter: 2009Q3

REPORT INFORMATION
  Report Type: 
  Country: None (occurrence: None)
  Receive Date: 20090821
  Receipt Date: 20090810
  Transmission Date: 20100115
  Serious: Yes (Other)
  Sender: FDA-Public Use
  Company Number: TR-ELI_LILLY_AND_COMPANY-TR200908002194

PATIENT
  Age: 37 Year
  Sex: Female

DRUGS (2)
  1. PROZAC [Suspect]
     Indication: MAJOR DEPRESSION
     Dosage: 10 MG, DAILY (1/D)
     Route: 065
  2. PROZAC [Suspect]
     Dosage: 40 MG, DAILY (1/D)
     Route: 065

REACTIONS (4)
  - BLOOD GROWTH HORMONE INCREASED [None]
  - BLOOD PROLACTIN INCREASED [None]
  - GALACTORRHOEA [None]
  - PITUITARY TUMOUR BENIGN [None]
